FAERS Safety Report 18197948 (Version 1)
Quarter: 2020Q3

REPORT INFORMATION
  Report Type: Spontaneous
  Country: US (occurrence: US)
  Receive Date: 20200826
  Receipt Date: 20200826
  Transmission Date: 20201103
  Serious: No
  Sender: FDA-Public Use
  Company Number: None

PATIENT
  Age: 2 Year
  Sex: Female
  Weight: 12.15 kg

DRUGS (2)
  1. BLUE LIZARD KIDS [Suspect]
     Active Substance: OCTINOXATE\OCTOCRYLENE\ZINC OXIDE
     Indication: SUNBURN
     Dates: start: 20200823, end: 20200824
  2. BLUE LIZARD KIDS [Suspect]
     Active Substance: OCTINOXATE\OCTOCRYLENE\ZINC OXIDE
     Indication: PROPHYLAXIS
     Dates: start: 20200823, end: 20200824

REACTIONS (2)
  - Application site urticaria [None]
  - Urticaria [None]

NARRATIVE: CASE EVENT DATE: 20200825
